FAERS Safety Report 5452757-9 (Version None)
Quarter: 2007Q3

REPORT INFORMATION
  Report Type: 
  Country: None (occurrence: None)
  Receive Date: 20070914
  Receipt Date: 20070912
  Transmission Date: 20080115
  Serious: Yes (Hospitalization, Disabling, Other)
  Sender: FDA-Public Use
  Company Number: US-MERCK-0704USA01003

PATIENT
  Age: 83 Year
  Sex: Female
  Weight: 84 kg

DRUGS (6)
  1. INVANZ [Suspect]
     Indication: URINARY TRACT INFECTION
     Route: 065
     Dates: start: 20070119, end: 20070120
  2. BENICAR [Concomitant]
     Indication: HYPERTENSION
     Route: 048
  3. PRAVASTATIN SODIUM [Concomitant]
     Indication: GASTROOESOPHAGEAL REFLUX DISEASE
     Route: 048
  4. DYAZIDE [Concomitant]
     Indication: HYPERTENSION
     Route: 048
  5. AMBIEN [Concomitant]
     Indication: INSOMNIA
     Route: 048
  6. VITAMIN D (UNSPECIFIED) [Concomitant]
     Indication: VITAMIN D DEFICIENCY
     Route: 065

REACTIONS (4)
  - ARTHRALGIA [None]
  - FATIGUE [None]
  - HEADACHE [None]
  - MUSCULAR WEAKNESS [None]
